FAERS Safety Report 14143750 (Version 6)
Quarter: 2018Q1

REPORT INFORMATION
  Report Type: Report from Study
  Country: SI (occurrence: SI)
  Receive Date: 20171031
  Receipt Date: 20180327
  Transmission Date: 20180508
  Serious: Yes (Hospitalization)
  Sender: FDA-Public Use
  Company Number: SI-ROCHE-2009575

PATIENT
  Age: 69 Year
  Sex: Male
  Weight: 74 kg

DRUGS (9)
  1. TARGINACT [Concomitant]
     Active Substance: NALOXONE HYDROCHLORIDE\OXYCODONE HYDROCHLORIDE
     Indication: BACK PAIN
     Route: 048
     Dates: start: 20170614, end: 20171129
  2. CODEIN [Concomitant]
     Active Substance: CODEINE
     Indication: COUGH
     Route: 048
     Dates: start: 20170524
  3. ANALGIN (SLOVENIA) [Concomitant]
     Indication: BACK PAIN
     Route: 050
     Dates: start: 20170614
  4. GEMCITABINE [Suspect]
     Active Substance: GEMCITABINE\GEMCITABINE HYDROCHLORIDE
     Indication: TRANSITIONAL CELL CARCINOMA
     Dosage: DOSE OF LAST GEMCITABINE ADMINISTERED PRIOR TO AE ONSET WAS 1800MG/M2 ON 04/OCT/2017.
     Route: 042
     Dates: start: 20170614
  5. AMLESSA [Concomitant]
     Active Substance: AMLODIPINE BESYLATE\PERINDOPRIL ERBUMINE
     Indication: HYPERTENSION
     Route: 048
     Dates: start: 201703
  6. CISPLATIN. [Suspect]
     Active Substance: CISPLATIN
     Indication: TRANSITIONAL CELL CARCINOMA
     Dosage: DOSE OF LAST CISPLATIN ADMINISTERED PRIOR TO AE ONSET WAS 126MG ON 04/OCT/2017.
     Route: 042
     Dates: start: 20170614
  7. VEROLAX (SLOVENIA) [Concomitant]
     Indication: CONSTIPATION
     Route: 048
     Dates: start: 20170621
  8. ATEZOLIZUMAB. [Suspect]
     Active Substance: ATEZOLIZUMAB
     Indication: TRANSITIONAL CELL CARCINOMA
     Dosage: DATE OF MOST RECENT DOSE OF BLINDED ATEZOLIZUMAB PRIOR TO AE ONSET WAS ON 04/OCT/2017.
     Route: 042
     Dates: start: 20170614
  9. SEVREDOL [Concomitant]
     Active Substance: MORPHINE
     Indication: BACK PAIN
     Route: 048
     Dates: start: 20170614

REACTIONS (3)
  - Arthritis [Recovered/Resolved]
  - Gastrointestinal infection [Recovered/Resolved]
  - Rash maculo-papular [Recovered/Resolved]

NARRATIVE: CASE EVENT DATE: 20171011
